FAERS Safety Report 20353643 (Version 1)
Quarter: 2022Q1

REPORT INFORMATION
  Report Type: Spontaneous
  Country: US (occurrence: None)
  Receive Date: 20220120
  Receipt Date: 20220120
  Transmission Date: 20220423
  Serious: No
  Sender: FDA-Public Use
  Company Number: US-USWM, LLC-UWM202103-000032

PATIENT
  Age: 66 Year
  Sex: Female
  Weight: 77.56 kg

DRUGS (6)
  1. NADOLOL [Suspect]
     Active Substance: NADOLOL
     Indication: Headache
  2. PFIZER-BIONTECH COVID-19 VACCINE [Suspect]
     Active Substance: TOZINAMERAN
     Indication: Product used for unknown indication
     Dosage: FIRST DOSE, LEFT ARM
     Dates: start: 20210312
  3. KEPPRA [Concomitant]
     Active Substance: LEVETIRACETAM
     Indication: Seizure
  4. KEPPRA [Concomitant]
     Active Substance: LEVETIRACETAM
     Dates: start: 20210313
  5. KEPPRA [Concomitant]
     Active Substance: LEVETIRACETAM
     Dates: start: 20210313
  6. LOVASTATIN [Concomitant]
     Active Substance: LOVASTATIN
     Indication: Blood cholesterol

REACTIONS (3)
  - Seizure [Recovered/Resolved]
  - Glossodynia [Recovering/Resolving]
  - Product use in unapproved indication [Unknown]

NARRATIVE: CASE EVENT DATE: 20210313
